FAERS Safety Report 22253488 (Version 1)
Quarter: 2023Q2

REPORT INFORMATION
  Report Type: Spontaneous
  Country: US (occurrence: US)
  Receive Date: 20230426
  Receipt Date: 20230426
  Transmission Date: 20230721
  Serious: Yes (Other)
  Sender: FDA-Public Use
  Company Number: US-BRISTOL-MYERS SQUIBB COMPANY-2023-056557

PATIENT
  Age: 20 Year
  Sex: Female

DRUGS (3)
  1. BELATACEPT [Suspect]
     Active Substance: BELATACEPT
     Indication: Heart transplant
     Dosage: ON DAYS 5, 9, 15, AND 29
  2. BELATACEPT [Suspect]
     Active Substance: BELATACEPT
  3. CARFILZOMIB [Suspect]
     Active Substance: CARFILZOMIB
     Indication: Heart transplant

REACTIONS (3)
  - Neuropathy peripheral [Unknown]
  - Condition aggravated [Unknown]
  - Off label use [Unknown]
